FAERS Safety Report 4527178-3 (Version None)
Quarter: 2004Q4

REPORT INFORMATION
  Report Type: 
  Country: None (occurrence: None)
  Receive Date: 20041213
  Receipt Date: 20041203
  Transmission Date: 20050328
  Serious: Yes (Other)
  Sender: FDA-Public Use
  Company Number: 2004-12-0136

PATIENT
  Age: 74 Year
  Sex: Female

DRUGS (3)
  1. ECURAL ^LIKE ELOCON^ TOPICALS [Suspect]
     Indication: SUICIDE ATTEMPT
     Dosage: 10ML ORAL
     Route: 048
     Dates: start: 20041203, end: 20041203
  2. ETILEFRINE ORAL SOLUTION [Suspect]
     Indication: SUICIDE ATTEMPT
     Dosage: 2 ML (10 MG) ORAL
     Route: 048
     Dates: start: 20041203, end: 20041203
  3. HYPERICUM PERFORAMTUM (ST. JOHN'S  WORT) TABLETS [Suspect]
     Indication: SUICIDE ATTEMPT
     Dosage: 50-60 TABLETS ORAL
     Route: 048
     Dates: start: 20041203, end: 20041203

REACTIONS (4)
  - HYPERTENSION [None]
  - MULTIPLE DRUG OVERDOSE [None]
  - SUICIDE ATTEMPT [None]
  - TACHYCARDIA [None]
